FAERS Safety Report 4921770-X (Version None)
Quarter: 2006Q1

REPORT INFORMATION
  Report Type: 
  Country: None (occurrence: None)
  Receive Date: 20060224
  Receipt Date: 20050705
  Transmission Date: 20060701
  Serious: No
  Sender: FDA-Public Use
  Company Number: US-BRISTOL-MYERS SQUIBB COMPANY-13025481

PATIENT
  Sex: Male

DRUGS (1)
  1. VAGISTAT-1 [Suspect]
     Indication: FUNGAL INFECTION
     Route: 061

REACTIONS (3)
  - OFF LABEL USE [None]
  - PENILE SWELLING [None]
  - SKIN IRRITATION [None]
